FAERS Safety Report 10136337 (Version 1)
Quarter: 2014Q2

REPORT INFORMATION
  Report Type: Spontaneous
  Country: US (occurrence: US)
  Receive Date: 20140429
  Receipt Date: 20140429
  Transmission Date: 20141212
  Serious: Yes (Other)
  Sender: FDA-Public Use
  Company Number: US-AMGEN-USASP2014030466

PATIENT
  Sex: Male

DRUGS (1)
  1. NEUPOGEN [Suspect]
     Indication: NEUTROPENIA
     Dosage: UNK
     Route: 065

REACTIONS (1)
  - Acute respiratory distress syndrome [Unknown]
